FAERS Safety Report 9345239 (Version 1)
Quarter: 2013Q2

REPORT INFORMATION
  Report Type: Spontaneous
  Country: US (occurrence: US)
  Receive Date: 20130612
  Receipt Date: 20130612
  Transmission Date: 20140414
  Serious: Yes (Hospitalization)
  Sender: FDA-Public Use
  Company Number: US-MYLANLABS-2013S1012189

PATIENT
  Age: 64 Year
  Sex: Female
  Weight: 78.02 kg

DRUGS (8)
  1. METHOTREXATE TABLETS, USP [Suspect]
     Indication: RHEUMATOID ARTHRITIS
     Route: 048
     Dates: start: 2010
  2. METHOTREXATE TABLETS, USP [Suspect]
     Indication: RHEUMATOID ARTHRITIS
     Route: 048
     Dates: end: 20130214
  3. FOLIC ACID [Concomitant]
     Indication: RHEUMATOID ARTHRITIS
     Route: 048
     Dates: start: 2010
  4. RITUXAN [Concomitant]
     Indication: RHEUMATOID ARTHRITIS
     Dosage: EVERY SIX MONTHS
     Route: 042
     Dates: start: 2010
  5. PREDNISONE [Concomitant]
     Indication: RHEUMATOID ARTHRITIS
     Route: 048
     Dates: start: 2010
  6. ULTRACET [Concomitant]
     Indication: PAIN
     Dosage: TAKEN FOR YEARS
     Route: 048
  7. ENALAPRIL [Concomitant]
     Indication: BLOOD PRESSURE INCREASED
     Dosage: TAKEN FOR YEARS
     Route: 048
     Dates: end: 201304
  8. HCTZ [Concomitant]
     Indication: BLOOD PRESSURE INCREASED
     Dosage: TAKEN FOR YEARS
     Route: 048

REACTIONS (3)
  - Interstitial lung disease [Recovered/Resolved]
  - Hypersensitivity [Recovered/Resolved]
  - Pneumonia [Recovered/Resolved]
